FAERS Safety Report 10687468 (Version 2)
Quarter: 2015Q3

REPORT INFORMATION
  Report Type: Spontaneous
  Country: US (occurrence: US)
  Receive Date: 20150102
  Receipt Date: 20150901
  Transmission Date: 20151125
  Serious: Yes (Other)
  Sender: FDA-Public Use
  Company Number: US-BAYER-2014-191268

PATIENT
  Age: 42 Year
  Sex: Female
  Weight: 59.86 kg

DRUGS (1)
  1. MIRENA [Suspect]
     Active Substance: LEVONORGESTREL
     Dosage: 20 MCG/24HR, CONT
     Route: 015
     Dates: start: 2009

REACTIONS (11)
  - Infertility female [None]
  - Genital haemorrhage [None]
  - Marital problem [None]
  - Device dislocation [None]
  - Abdominal pain [None]
  - Pelvic pain [None]
  - Menorrhagia [None]
  - Emotional distress [None]
  - Stress [None]
  - Depression [None]
  - Injury [None]

NARRATIVE: CASE EVENT DATE: 2009
